FAERS Safety Report 7333443-7 (Version None)
Quarter: 2011Q1

REPORT INFORMATION
  Report Type: 
  Country: None (occurrence: None)
  Receive Date: 20110304
  Receipt Date: 20110222
  Transmission Date: 20110831
  Serious: Yes (Death, Hospitalization)
  Sender: FDA-Public Use
  Company Number: JP-WATSON-2011-00970

PATIENT
  Age: 64 Year
  Sex: Female

DRUGS (3)
  1. PREDNISOLONE [Suspect]
     Indication: BRONCHIECTASIS
     Dosage: UNK
  2. LEVOFLOXACIN [Suspect]
     Indication: LUNG INFECTION
     Dosage: 200 MG, DAILY
     Route: 048
  3. TACROLIMUS (WATSON LABORATORIES) [Suspect]
     Indication: PROPHYLAXIS AGAINST TRANSPLANT REJECTION
     Dosage: UNK

REACTIONS (7)
  - BRONCHIECTASIS [None]
  - BRONCHOPULMONARY ASPERGILLOSIS [None]
  - SERRATIA INFECTION [None]
  - OBLITERATIVE BRONCHIOLITIS [None]
  - RESPIRATORY TRACT INFECTION [None]
  - RESPIRATORY FAILURE [None]
  - DRUG INEFFECTIVE [None]
